FAERS Safety Report 6192157-X (Version None)
Quarter: 2009Q2

REPORT INFORMATION
  Report Type: 
  Country: None (occurrence: None)
  Receive Date: 20090515
  Receipt Date: 20090507
  Transmission Date: 20091009
  Serious: Yes (Hospitalization)
  Sender: FDA-Public Use
  Company Number: PHHY2009DE15652

PATIENT
  Sex: Male
  Weight: 147 kg

DRUGS (7)
  1. RASILEZ [Suspect]
     Indication: HYPERTENSION
     Dosage: 1 DF, QD
     Dates: start: 20090301, end: 20090411
  2. TORSEMIDE [Concomitant]
     Indication: RENAL IMPAIRMENT
     Dosage: 10 MG/D
     Dates: end: 20090411
  3. ALLOPURINOL [Concomitant]
  4. METOPROLOL SUCCINATE [Concomitant]
  5. DIGITOXIN [Concomitant]
  6. INSULIN [Concomitant]
  7. URAPIDIL [Concomitant]

REACTIONS (14)
  - ASTHENIA [None]
  - BLOOD CREATININE INCREASED [None]
  - BLOOD UREA INCREASED [None]
  - DIALYSIS [None]
  - DIARRHOEA [None]
  - DIVERTICULUM INTESTINAL [None]
  - HAEMOGLOBIN DECREASED [None]
  - HYPERKALAEMIA [None]
  - KIDNEY ENLARGEMENT [None]
  - NAUSEA [None]
  - POLYP [None]
  - RENAL FAILURE [None]
  - URINE OUTPUT DECREASED [None]
  - VOMITING [None]
